FAERS Safety Report 20010955 (Version 1)
Quarter: 2021Q4

REPORT INFORMATION
  Report Type: Spontaneous
  Country: CA (occurrence: CA)
  Receive Date: 20211028
  Receipt Date: 20211028
  Transmission Date: 20220303
  Serious: Yes (Hospitalization)
  Sender: FDA-Public Use
  Company Number: CA-TEVA-2021-CA-1969898

PATIENT
  Age: 71 Year
  Sex: Male
  Weight: 93 kg

DRUGS (14)
  1. AMOXICILLIN [Suspect]
     Active Substance: AMOXICILLIN
     Dosage: 1500 MILLIGRAM DAILY;
     Route: 048
  2. ASPIRIN [Concomitant]
     Active Substance: ASPIRIN
     Route: 065
  3. ATORVASTATIN [Concomitant]
     Active Substance: ATORVASTATIN
  4. CEFADROXIL [Concomitant]
     Active Substance: CEFADROXIL
  5. CENTRUM FORTE [Concomitant]
  6. CLOPIDOGREL [Concomitant]
     Active Substance: CLOPIDOGREL BISULFATE
  7. DILTIAZEM [Concomitant]
     Active Substance: DILTIAZEM
  8. DORZOLAMIDE\TIMOLOL [Concomitant]
     Active Substance: DORZOLAMIDE\TIMOLOL
  9. FUROSEMIDE [Concomitant]
     Active Substance: FUROSEMIDE
  10. NITROGLYCERIN [Concomitant]
     Active Substance: NITROGLYCERIN
  11. GLYCOPYRRONIUM [Concomitant]
     Active Substance: GLYCOPYRRONIUM
  12. BROMIDE [Concomitant]
  13. KETOCONAZOLE [Concomitant]
     Active Substance: KETOCONAZOLE
  14. LACTULOSE [Concomitant]
     Active Substance: LACTULOSE

REACTIONS (3)
  - Cold agglutinins [Recovering/Resolving]
  - Haemolytic anaemia [Recovering/Resolving]
  - Haptoglobin decreased [Recovering/Resolving]
